FAERS Safety Report 20579270 (Version 1)
Quarter: 2022Q1

REPORT INFORMATION
  Report Type: Spontaneous
  Country: US (occurrence: None)
  Receive Date: 20220310
  Receipt Date: 20220310
  Transmission Date: 20220423
  Serious: Yes (Other)
  Sender: FDA-Public Use
  Company Number: None

PATIENT
  Age: 69 Year
  Sex: Male
  Weight: 105.3 kg

DRUGS (4)
  1. CREST PRO-HEALTH CLINICAL [Suspect]
     Active Substance: CETYLPYRIDINIUM CHLORIDE
     Indication: Aphthous ulcer
     Dosage: FREQUENCY : EVERY 4 HOURS;?
     Route: 048
     Dates: start: 20210307, end: 20210309
  2. VALIUM [Concomitant]
     Active Substance: DIAZEPAM
  3. Men^s vitamins [Concomitant]
  4. ASPIRIN [Concomitant]
     Active Substance: ASPIRIN

REACTIONS (9)
  - Gingival ulceration [None]
  - Noninfective gingivitis [None]
  - Oral pain [None]
  - Oral mucosal exfoliation [None]
  - Wound [None]
  - Burn oral cavity [None]
  - Oral discomfort [None]
  - Oral disorder [None]
  - Ageusia [None]

NARRATIVE: CASE EVENT DATE: 20210309
